FAERS Safety Report 9744288 (Version 2)
Quarter: 2013Q4

REPORT INFORMATION
  Report Type: Spontaneous
  Country: US (occurrence: US)
  Receive Date: 20131210
  Receipt Date: 20131210
  Transmission Date: 20140711
  Serious: Yes (Other)
  Sender: FDA-Public Use
  Company Number: US-UCBSA-098243

PATIENT
  Age: 69 Year
  Sex: Female

DRUGS (1)
  1. CIMZIA [Suspect]
     Indication: RHEUMATOID ARTHRITIS
     Dosage: DRUG STRENGTH: 400MG ; 2 SYRINGES ONCE A MONTH

REACTIONS (4)
  - Back pain [Recovered/Resolved]
  - Spinal column stenosis [Recovered/Resolved]
  - Injection site pain [Unknown]
  - Pain in extremity [Recovered/Resolved]
